FAERS Safety Report 8720575 (Version 2)
Quarter: 2015Q2

REPORT INFORMATION
  Report Type: Report from Study
  Country: US (occurrence: US)
  Receive Date: 20120813
  Receipt Date: 20150629
  Transmission Date: 20150821
  Serious: Yes (Hospitalization)
  Sender: FDA-Public Use
  Company Number: US-ROCHE-1097887

PATIENT
  Sex: Female

DRUGS (18)
  1. ZESTRIL [Concomitant]
     Active Substance: LISINOPRIL
  2. CARDIZEM [Concomitant]
     Active Substance: DILTIAZEM HYDROCHLORIDE
     Route: 065
  3. COMPAZINE [Concomitant]
     Active Substance: PROCHLORPERAZINE MALEATE
     Route: 042
  4. DIAZEPAM. [Concomitant]
     Active Substance: DIAZEPAM
     Dosage: 5-10 MG
     Route: 042
  5. ACTIVASE [Suspect]
     Active Substance: ALTEPLASE
     Indication: ACUTE MYOCARDIAL INFARCTION
     Dosage: 10MG FOR 1-2MIN, 50MG FOR 1HOUR, 40MG/HOUR
     Route: 040
     Dates: start: 19880818
  6. ACTIVASE [Suspect]
     Active Substance: ALTEPLASE
     Indication: DRESSLER^S SYNDROME
     Route: 042
  7. ACTIVASE [Suspect]
     Active Substance: ALTEPLASE
     Indication: ARTERIOSCLEROSIS CORONARY ARTERY
  8. NITRO-DUR [Concomitant]
     Active Substance: NITROGLYCERIN
     Route: 062
  9. DEMEROL [Concomitant]
     Active Substance: MEPERIDINE HYDROCHLORIDE
     Dosage: 25-50 MG, PM
     Route: 042
  10. ACTIVASE [Suspect]
     Active Substance: ALTEPLASE
     Indication: ESSENTIAL HYPERTENSION
  11. TYLENOL [Concomitant]
     Active Substance: ACETAMINOPHEN
  12. NITROGLYCERIN. [Concomitant]
     Active Substance: NITROGLYCERIN
     Route: 065
  13. PROCARDIA (UNITED STATES) [Concomitant]
     Route: 065
  14. BENADRYL [Concomitant]
     Active Substance: DIPHENHYDRAMINE HYDROCHLORIDE
     Route: 065
  15. SORBITRATE [Concomitant]
     Active Substance: ISOSORBIDE DINITRATE
     Route: 065
  16. ATROPINE [Concomitant]
     Active Substance: ATROPINE
     Dosage: 0.5-1.0 MG
     Route: 065
  17. PREMARIN [Concomitant]
     Active Substance: ESTROGENS, CONJUGATED
     Route: 065
  18. ISORDIL [Concomitant]
     Active Substance: ISOSORBIDE DINITRATE
     Route: 065

REACTIONS (7)
  - Chest pain [Recovered/Resolved]
  - Reperfusion arrhythmia [Unknown]
  - Accelerated idioventricular rhythm [Unknown]
  - Ventricular arrhythmia [Unknown]
  - Ventricular tachycardia [Unknown]
  - Ventricular extrasystoles [Unknown]
  - Chest discomfort [Unknown]
